FAERS Safety Report 7972698-2 (Version None)
Quarter: 2011Q4

REPORT INFORMATION
  Report Type: 
  Country: None (occurrence: None)
  Receive Date: 20111213
  Receipt Date: 20111208
  Transmission Date: 20120403
  Serious: No
  Sender: FDA-Public Use
  Company Number: US-TEVA-313109USA

PATIENT
  Sex: Female
  Weight: 61.29 kg

DRUGS (1)
  1. PLAN B ONE-STEP [Suspect]
     Indication: POST COITAL CONTRACEPTION
     Dosage: 1.5 MILLIGRAM;
     Route: 048
     Dates: start: 20111122, end: 20111122

REACTIONS (5)
  - SALIVARY HYPERSECRETION [None]
  - NAUSEA [None]
  - ABDOMINAL PAIN [None]
  - BACK PAIN [None]
  - MENSTRUATION IRREGULAR [None]
